FAERS Safety Report 4805764-0 (Version None)
Quarter: 2005Q4

REPORT INFORMATION
  Report Type: 
  Country: None (occurrence: None)
  Receive Date: 20051021
  Receipt Date: 20051005
  Transmission Date: 20060501
  Serious: Yes (Hospitalization)
  Sender: FDA-Public Use
  Company Number: IE-ROCHE-419977

PATIENT
  Age: 56 Year
  Sex: Male

DRUGS (5)
  1. XENICAL [Suspect]
     Route: 048
     Dates: end: 20050801
  2. LOSEC [Concomitant]
     Dates: end: 20050801
  3. ASPIRIN [Concomitant]
     Dates: end: 20050801
  4. ARCOXIA [Concomitant]
     Dates: end: 20050801
  5. TYLEX [Concomitant]
     Dates: end: 20050801

REACTIONS (1)
  - ABSCESS INTESTINAL [None]
